FAERS Safety Report 9891116 (Version 2)
Quarter: 2014Q1

REPORT INFORMATION
  Report Type: Other
  Country: US (occurrence: US)
  Receive Date: 20140212
  Receipt Date: 20140212
  Transmission Date: 20141002
  Serious: No
  Sender: FDA-Public Use
  Company Number: US-ACORDA-ACO_38717_2013

PATIENT
  Age: 50 Year
  Sex: Female
  Weight: 68.93 kg

DRUGS (1)
  1. AMPYRA [Suspect]
     Indication: GAIT DISTURBANCE
     Dosage: 10 MG, Q 12 HRS
     Route: 048
     Dates: start: 20130923, end: 20130924

REACTIONS (10)
  - Palpitations [Recovered/Resolved]
  - Energy increased [Unknown]
  - Feeling cold [Recovered/Resolved]
  - Feeling hot [Recovered/Resolved]
  - Therapeutic response unexpected [Unknown]
  - Musculoskeletal stiffness [Recovering/Resolving]
  - Back pain [Recovering/Resolving]
  - Insomnia [Recovered/Resolved]
  - Headache [Recovering/Resolving]
  - Paraesthesia [Unknown]
